FAERS Safety Report 5140494-X (Version None)
Quarter: 2006Q4

REPORT INFORMATION
  Report Type: 
  Country: None (occurrence: None)
  Receive Date: 20061031
  Receipt Date: 20061005
  Transmission Date: 20070319
  Serious: Yes (Hospitalization)
  Sender: FDA-Public Use
  Company Number: US-BRISTOL-MYERS SQUIBB COMPANY-13533732

PATIENT
  Age: 67 Year
  Sex: Male

DRUGS (4)
  1. ERBITUX [Suspect]
     Indication: COLON CANCER
     Route: 042
     Dates: start: 20060524, end: 20060524
  2. LEUCOVORIN CALCIUM [Concomitant]
     Dates: start: 20060522
  3. FLUOROURACIL [Concomitant]
     Dates: start: 20060522
  4. IRINOTECAN HCL [Concomitant]
     Dates: start: 20060522

REACTIONS (4)
  - BRADYCARDIA [None]
  - CHEST PAIN [None]
  - URTICARIA [None]
  - VOMITING [None]
